FAERS Safety Report 6816220-2 (Version None)
Quarter: 2010Q3

REPORT INFORMATION
  Report Type: 
  Country: None (occurrence: None)
  Receive Date: 20100701
  Receipt Date: 20100701
  Transmission Date: 20110219
  Serious: Yes (Other)
  Sender: FDA-Public Use
  Company Number: None

PATIENT
  Sex: Male
  Weight: 72.5755 kg

DRUGS (2)
  1. ZICAM MOUTH SPRAY [Suspect]
     Indication: COUGH
     Dosage: FIRST TIM 4 SPRAYS NEXT MORNING ONCE/STOPPED
     Dates: start: 20100427
  2. ZICAM MOUTH SPRAY [Suspect]
     Indication: COUGH
     Dosage: FIRST TIM 4 SPRAYS NEXT MORNING ONCE/STOPPED
     Dates: start: 20100428

REACTIONS (2)
  - AGEUSIA [None]
  - WEIGHT DECREASED [None]
